FAERS Safety Report 8826565 (Version 1)
Quarter: 2012Q4

REPORT INFORMATION
  Report Type: 
  Country: US (occurrence: US)
  Receive Date: 20121007
  Receipt Date: 20121007
  Transmission Date: 20130627
  Serious: No
  Sender: FDA-Public Use
  Company Number: US-009507513-1208USA010162

PATIENT
  Age: 49 Year
  Sex: Female
  Weight: 52.15 kg

DRUGS (1)
  1. DULERA [Suspect]
     Dosage: 200/5, 2 puffs, bid
     Dates: start: 20120601, end: 20120601

REACTIONS (1)
  - Feeling jittery [Recovered/Resolved]
